FAERS Safety Report 14260497 (Version 5)
Quarter: 2018Q1

REPORT INFORMATION
  Report Type: Spontaneous
  Country: US (occurrence: US)
  Receive Date: 20171207
  Receipt Date: 20180129
  Transmission Date: 20180508
  Serious: Yes (Death, Hospitalization)
  Sender: FDA-Public Use
  Company Number: US-ACTELION-A-NJ2017-163711

PATIENT
  Age: 78 Year
  Sex: Male
  Weight: 120.18 kg

DRUGS (2)
  1. ADEMPAS [Concomitant]
     Active Substance: RIOCIGUAT
  2. OPSUMIT [Suspect]
     Active Substance: MACITENTAN
     Indication: PULMONARY ARTERIAL HYPERTENSION
     Dosage: 10 MG, QD
     Route: 048

REACTIONS (11)
  - Spinal column stenosis [Unknown]
  - Abdominal distension [Unknown]
  - Dyspnoea [Unknown]
  - Oliguria [Unknown]
  - Hypoacusis [Unknown]
  - Acute kidney injury [Unknown]
  - Death [Fatal]
  - Eustachian tube obstruction [Unknown]
  - Peripheral swelling [Unknown]
  - Cardiac failure congestive [Unknown]
  - Respiratory failure [Unknown]

NARRATIVE: CASE EVENT DATE: 20180119
